FAERS Safety Report 23600555 (Version 1)
Quarter: 2024Q1

REPORT INFORMATION
  Report Type: Spontaneous
  Country: US (occurrence: None)
  Receive Date: 20240305
  Receipt Date: 20240305
  Transmission Date: 20240410
  Serious: No
  Sender: FDA-Public Use
  Company Number: None

PATIENT
  Age: 43 Year
  Sex: Female

DRUGS (6)
  1. COSENTYX [Suspect]
     Active Substance: SECUKINUMAB
     Indication: Psoriatic arthropathy
     Dosage: FREQUENCY : EVERY OTHER WEEK;?
     Route: 058
     Dates: start: 20231002, end: 20240305
  2. Clobetasol cream 0.05% [Concomitant]
  3. meloxicam suspension 7.5 mg / 5 mL [Concomitant]
  4. nabumetone 500 tabs [Concomitant]
  5. VITAMINS [Concomitant]
     Active Substance: VITAMINS
  6. TRI-SPRINTEC [Concomitant]
     Active Substance: ETHINYL ESTRADIOL\NORGESTIMATE

REACTIONS (3)
  - Brain fog [None]
  - Cognitive disorder [None]
  - Memory impairment [None]

NARRATIVE: CASE EVENT DATE: 20240305
